FAERS Safety Report 9311716 (Version 1)
Quarter: 2013Q2

REPORT INFORMATION
  Report Type: Spontaneous
  Country: GB (occurrence: GB)
  Receive Date: 20130528
  Receipt Date: 20130528
  Transmission Date: 20140414
  Serious: Yes (Other)
  Sender: FDA-Public Use
  Company Number: GB-009507513-1305GBR013436

PATIENT
  Age: 67 Year
  Sex: Male

DRUGS (2)
  1. SINEMET PLUS [Suspect]
     Dosage: UNK
     Route: 048
  2. MADOPAR [Concomitant]

REACTIONS (9)
  - Loss of consciousness [Unknown]
  - Drug ineffective [Unknown]
  - Constipation [Unknown]
  - Musculoskeletal stiffness [Unknown]
  - Dizziness [Unknown]
  - Fatigue [Unknown]
  - Depression [Unknown]
  - Tablet physical issue [Unknown]
  - Product shape issue [None]
